FAERS Safety Report 21492635 (Version 2)
Quarter: 2022Q4

REPORT INFORMATION
  Report Type: Spontaneous
  Country: JP (occurrence: JP)
  Receive Date: 20221021
  Receipt Date: 20221129
  Transmission Date: 20230112
  Serious: Yes (Hospitalization, Other)
  Sender: FDA-Public Use
  Company Number: JP-MYOVANT SCIENCES GMBH-2022MYSCI1000310

PATIENT
  Age: 15 Year
  Sex: Female

DRUGS (1)
  1. RELUGOLIX [Suspect]
     Active Substance: RELUGOLIX
     Indication: Intermenstrual bleeding
     Dosage: 40 MILLIGRAM, QD
     Route: 048
     Dates: start: 20211130, end: 20220303

REACTIONS (2)
  - Pelvic inflammatory disease [Recovered/Resolved]
  - Off label use [Unknown]
